FAERS Safety Report 26149850 (Version 1)
Quarter: 2025Q4

REPORT INFORMATION
  Report Type: Spontaneous
  Country: EU (occurrence: EU)
  Receive Date: 20251212
  Receipt Date: 20251212
  Transmission Date: 20260117
  Serious: Yes (Other)
  Sender: BAXTER
  Company Number: None

PATIENT
  Sex: Female

DRUGS (1)
  1. DEXTROSE [Suspect]
     Active Substance: DEXTROSE MONOHYDRATE
     Indication: Hyperinsulinism
     Dosage: UNK
     Route: 042
     Dates: start: 202510

REACTIONS (2)
  - Hypoglycaemia [Recovered/Resolved]
  - Inappropriate schedule of product administration [Recovered/Resolved]
